FAERS Safety Report 5714863-0 (Version None)
Quarter: 2008Q2

REPORT INFORMATION
  Report Type: 
  Country: None (occurrence: None)
  Receive Date: 20080423
  Receipt Date: 20070911
  Transmission Date: 20081010
  Serious: No
  Sender: FDA-Public Use
  Company Number: US-BAYER-US-2007-034160

PATIENT
  Age: 38 Year
  Sex: Female
  Weight: 59 kg

DRUGS (6)
  1. LEUKINE [Suspect]
     Indication: NEUTROPENIA
     Route: 058
     Dates: start: 20070821, end: 20070821
  2. LEUKINE [Suspect]
     Route: 058
     Dates: start: 20070822, end: 20070822
  3. LEUKINE [Suspect]
     Route: 058
     Dates: start: 20070823, end: 20070823
  4. LEUKINE [Suspect]
     Dates: start: 20070824, end: 20070824
  5. PREVACID [Concomitant]
     Dosage: UNIT DOSE: 30 MG
     Route: 048
  6. ALPRAZOLAM [Concomitant]
     Dosage: UNIT DOSE: 0.5 MG
     Route: 048

REACTIONS (4)
  - CHEST DISCOMFORT [None]
  - FLUSHING [None]
  - HEART RATE INCREASED [None]
  - PRURITUS [None]
